FAERS Safety Report 13866570 (Version 1)
Quarter: 2017Q3

REPORT INFORMATION
  Report Type: Spontaneous
  Country: US (occurrence: US)
  Receive Date: 20170814
  Receipt Date: 20170814
  Transmission Date: 20171127
  Serious: No
  Sender: FDA-Public Use
  Company Number: US-ROCHE-1915084

PATIENT
  Sex: Male

DRUGS (1)
  1. ACTEMRA [Suspect]
     Active Substance: TOCILIZUMAB
     Indication: RHEUMATOID ARTHRITIS
     Dosage: DRUG RECIEVED FROM 08/FEB/2017 TO PRESENT.?FORM STREGTH: 400 MG/ 20ML
     Route: 042
     Dates: start: 20170208

REACTIONS (2)
  - Drug ineffective [Unknown]
  - Pain [Unknown]
